FAERS Safety Report 6811039-0 (Version None)
Quarter: 2010Q2

REPORT INFORMATION
  Report Type: 
  Country: None (occurrence: None)
  Receive Date: 20100630
  Receipt Date: 20090320
  Transmission Date: 20101027
  Serious: No
  Sender: FDA-Public Use
  Company Number: US-PFIZER INC-2009186405

PATIENT
  Sex: Female
  Weight: 61.2 kg

DRUGS (7)
  1. ESTRING [Suspect]
     Indication: VULVOVAGINAL DRYNESS
     Dosage: UNK
     Dates: start: 20081101
  2. ESTRING [Suspect]
     Indication: VULVOVAGINAL BURNING SENSATION
  3. ESTRING [Suspect]
     Indication: OESTROGEN REPLACEMENT THERAPY
  4. GABAPENTIN [Concomitant]
     Dosage: UNK
  5. VALTREX [Concomitant]
     Dosage: UNK
  6. ZOLPIDEM [Concomitant]
     Dosage: UNK
  7. CHLORDIAZEPOXIDE/CLIDINIUM [Concomitant]
     Dosage: UNK

REACTIONS (2)
  - DRUG INEFFECTIVE [None]
  - FUNGAL INFECTION [None]
